FAERS Safety Report 8024403-1 (Version None)
Quarter: 2012Q1

REPORT INFORMATION
  Report Type: 
  Country: None (occurrence: None)
  Receive Date: 20120105
  Receipt Date: 20120105
  Transmission Date: 20120608
  Serious: Yes (Other)
  Sender: FDA-Public Use
  Company Number: None

PATIENT
  Age: 58 Year
  Sex: Female
  Weight: 89.357 kg

DRUGS (1)
  1. SINGULAIR [Suspect]
     Indication: RHINITIS ALLERGIC
     Dosage: 10MG TAB
     Route: 048
     Dates: start: 20110101, end: 20111221

REACTIONS (4)
  - IMPLANT SITE PAIN [None]
  - IMPLANT SITE REACTION [None]
  - ECONOMIC PROBLEM [None]
  - RHINITIS [None]
